FAERS Safety Report 18265362 (Version 1)
Quarter: 2020Q3

REPORT INFORMATION
  Report Type: Other
  Country: US (occurrence: US)
  Receive Date: 20200914
  Receipt Date: 20200914
  Transmission Date: 20201103
  Serious: No
  Sender: FDA-Public Use
  Company Number: US-LEADIANT BIOSCIENCES INC-2020STPI000085

PATIENT

DRUGS (14)
  1. IRON [Concomitant]
     Active Substance: IRON
  2. VITAMIN D3 [Concomitant]
     Active Substance: CHOLECALCIFEROL
  3. CHLORTHALIDON [Concomitant]
     Active Substance: CHLORTHALIDONE
  4. ELIQUIS [Concomitant]
     Active Substance: APIXABAN
  5. ONDANSETRON [Concomitant]
     Active Substance: ONDANSETRON
  6. GLEOSTINE [Concomitant]
     Active Substance: LOMUSTINE
  7. GABAPENTIN. [Concomitant]
     Active Substance: GABAPENTIN
  8. METOPROLOL. [Concomitant]
     Active Substance: METOPROLOL
  9. MATULANE [Suspect]
     Active Substance: PROCARBAZINE HYDROCHLORIDE
     Indication: BRAIN NEOPLASM MALIGNANT
     Dosage: 150 MILLIGRAM, QD
     Route: 048
     Dates: start: 20190926
  10. DEXAMETHASONE. [Concomitant]
     Active Substance: DEXAMETHASONE
  11. VITAMINS NOS [Concomitant]
     Active Substance: VITAMINS
  12. OMEGA 3 [FISH OIL] [Concomitant]
     Active Substance: FISH OIL
  13. VITAMIN B12 [HYDROXOCOBALAMIN] [Concomitant]
     Active Substance: HYDROXOCOBALAMIN
  14. NORTRIPTYLINE [Concomitant]
     Active Substance: NORTRIPTYLINE

REACTIONS (3)
  - Headache [Not Recovered/Not Resolved]
  - Fatigue [Not Recovered/Not Resolved]
  - Nausea [Not Recovered/Not Resolved]
